FAERS Safety Report 4641021-3 (Version None)
Quarter: 2005Q2

REPORT INFORMATION
  Report Type: 
  Country: None (occurrence: None)
  Receive Date: 20050419
  Receipt Date: 20050419
  Transmission Date: 20051028
  Serious: Yes (Death, Hospitalization)
  Sender: FDA-Public Use
  Company Number: None

PATIENT
  Age: 63 Year
  Weight: 87.0906 kg

DRUGS (3)
  1. TAXOL [Suspect]
     Indication: ENDOMETRIAL CANCER
     Dosage: 175 MG/M2 (332 MG) IV
     Route: 042
     Dates: start: 20050212
  2. TAXOL [Suspect]
     Indication: ENDOMETRIAL CANCER
     Dosage: 175 MG/M2 (332 MG) IV
     Route: 042
     Dates: start: 20050308
  3. CARBOPLATIN [Suspect]
     Dosage: QUC 6 (462 MG) IV
     Route: 042
     Dates: start: 20050308

REACTIONS (11)
  - ABDOMINAL PAIN [None]
  - ACUTE RESPIRATORY FAILURE [None]
  - CARDIAC FAILURE CONGESTIVE [None]
  - DISEASE PROGRESSION [None]
  - HAEMOGLOBIN DECREASED [None]
  - HYPOTENSION [None]
  - METABOLIC ACIDOSIS [None]
  - OEDEMA PERIPHERAL [None]
  - OXYGEN SATURATION DECREASED [None]
  - PLEURAL EFFUSION [None]
  - WHITE BLOOD CELL COUNT INCREASED [None]
